FAERS Safety Report 8849927 (Version 1)
Quarter: 2012Q4

REPORT INFORMATION
  Report Type: Report from Study
  Country: RU (occurrence: RU)
  Receive Date: 20121019
  Receipt Date: 20121019
  Transmission Date: 20130627
  Serious: Yes (Life-Threatening, Hospitalization)
  Sender: FDA-Public Use
  Company Number: RU-ROCHE-1147122

PATIENT
  Age: 53 Year
  Sex: Female
  Weight: 72 kg

DRUGS (6)
  1. BEVACIZUMAB [Suspect]
     Indication: COLON CANCER
     Route: 050
     Dates: start: 20120411, end: 20121012
  2. 5-FLUOROURACIL [Concomitant]
     Indication: COLON CANCER
     Route: 040
     Dates: start: 20120411
  3. 5-FLUOROURACIL [Concomitant]
     Route: 042
     Dates: end: 20121012
  4. LEUCOVORIN [Concomitant]
     Indication: COLON CANCER
     Route: 065
     Dates: start: 20120411, end: 20121012
  5. IRINOTECAN [Concomitant]
     Indication: COLON CANCER
     Route: 065
     Dates: start: 20120706, end: 20121012
  6. OXALIPLATIN [Concomitant]
     Indication: COLON CANCER
     Route: 065
     Dates: start: 20120411, end: 20120706

REACTIONS (2)
  - Disease progression [Not Recovered/Not Resolved]
  - Ascites [Not Recovered/Not Resolved]
